FAERS Safety Report 9350808 (Version 3)
Quarter: 2014Q1

REPORT INFORMATION
  Report Type: Spontaneous
  Country: US (occurrence: US)
  Receive Date: 20130617
  Receipt Date: 20140225
  Transmission Date: 20141002
  Serious: No
  Sender: FDA-Public Use
  Company Number: US-PFIZER INC-2013181172

PATIENT
  Age: 71 Year
  Sex: Male
  Weight: 97.51 kg

DRUGS (12)
  1. LYRICA [Suspect]
     Indication: DIABETIC NEUROPATHY
     Dosage: 100MG IN MORNING AND 200MG AT NIGHT, 2X/DAY
     Dates: start: 2012
  2. LYRICA [Suspect]
     Dosage: 50 MG, 1X/DAY
     Route: 048
  3. LYRICA [Suspect]
     Dosage: 50 MG, AS NEEDED
  4. LYRICA [Suspect]
     Dosage: UNK
  5. LYRICA [Suspect]
     Dosage: 50 MG, 2X/DAY
  6. OXYCODONE HYDROCHLORIDE [Suspect]
     Dosage: 60 MG, UNK
  7. OXYCONTIN [Suspect]
     Dosage: 80 MG, 1X/DAY
  8. NORVASC [Concomitant]
     Indication: HYPERTENSION
     Dosage: 520 MG, 1X/DAY
  9. NORVASC [Concomitant]
     Dosage: 10 MG, 1X/DAY
  10. GLIPIZIDE [Concomitant]
     Indication: DIABETES MELLITUS
     Dosage: 5 MG, 2X/DAY
  11. NOVOLOG MIX 70/30 [Concomitant]
     Indication: DIABETES MELLITUS
     Dosage: UNK, (30 MG INSULIN ASPART/70 MG PROTAMINE TWO TIMES A DAY)
  12. NOVOLOG MIX 70/30 [Concomitant]
     Dosage: (INSULIN ASPART 70 MG/PROTAMINE 30 MG), AS NEEDED

REACTIONS (2)
  - Feeling abnormal [Unknown]
  - Drug intolerance [Unknown]
